FAERS Safety Report 5272829-1 (Version None)
Quarter: 2007Q1

REPORT INFORMATION
  Report Type: 
  Country: None (occurrence: None)
  Receive Date: 20070322
  Receipt Date: 20070314
  Transmission Date: 20070707
  Serious: Yes (Hospitalization)
  Sender: FDA-Public Use
  Company Number: AU-ABBOTT-06P-008-0346852-00

PATIENT
  Sex: Female
  Weight: 73 kg

DRUGS (3)
  1. HUMIRA [Suspect]
     Indication: RHEUMATOID ARTHRITIS
     Route: 058
     Dates: start: 20040114, end: 20040901
  2. HUMIRA [Suspect]
     Dates: start: 20041201
  3. COMMERICIAL HUMIRA [Concomitant]
     Indication: RHEUMATOID ARTHRITIS
     Route: 058
     Dates: start: 20031203

REACTIONS (1)
  - BREAST ENLARGEMENT [None]
